FAERS Safety Report 23286966 (Version 2)
Quarter: 2024Q1

REPORT INFORMATION
  Report Type: Spontaneous
  Country: US (occurrence: US)
  Receive Date: 20231212
  Receipt Date: 20240229
  Transmission Date: 20240410
  Serious: No
  Sender: FDA-Public Use
  Company Number: US-BAXTER-2023BAX037490

PATIENT

DRUGS (4)
  1. DIANEAL FOR PERITONEAL DIALYSIS [Suspect]
     Active Substance: ANHYDROUS DEXTROSE\CALCIUM CHLORIDE\MAGNESIUM CHLORIDE\SODIUM CHLORIDE\SODIUM LACTATE
     Route: 033
  2. DIANEAL FOR PERITONEAL DIALYSIS [Suspect]
     Active Substance: ANHYDROUS DEXTROSE\CALCIUM CHLORIDE\MAGNESIUM CHLORIDE\SODIUM CHLORIDE\SODIUM LACTATE
     Dosage: 3L/3L (BAG VOLUME)
     Route: 033
  3. DIANEAL FOR PERITONEAL DIALYSIS [Suspect]
     Active Substance: ANHYDROUS DEXTROSE\CALCIUM CHLORIDE\MAGNESIUM CHLORIDE\SODIUM CHLORIDE\SODIUM LACTATE
     Dosage: 6L/6L (BAG VOLUME)
     Route: 033
  4. ZARXIO [Suspect]
     Active Substance: FILGRASTIM-SNDZ
     Route: 065

REACTIONS (5)
  - Swelling [Unknown]
  - Periorbital swelling [Unknown]
  - Eye pruritus [Unknown]
  - Eye disorder [Unknown]
  - Peripheral swelling [Unknown]
